FAERS Safety Report 16970793 (Version 7)
Quarter: 2020Q1

REPORT INFORMATION
  Report Type: Report from Study
  Country: US (occurrence: US)
  Receive Date: 20191029
  Receipt Date: 20200228
  Transmission Date: 20200409
  Serious: Yes (Hospitalization, Other)
  Sender: FDA-Public Use
  Company Number: US-PFIZER INC-2017300800

PATIENT
  Age: 81 Year
  Sex: Male

DRUGS (4)
  1. SUTENT [Suspect]
     Active Substance: SUNITINIB MALATE
     Dosage: 50 MG, DAILY
     Route: 048
     Dates: start: 2017
  2. SUTENT [Suspect]
     Active Substance: SUNITINIB MALATE
     Dosage: 37.5 MG, CYCLIC(DAILY FOR TWO WEEKS ON AND TWO WEEKS OFF)
     Route: 048
     Dates: start: 20191022, end: 20200201
  3. SUTENT [Suspect]
     Active Substance: SUNITINIB MALATE
     Indication: RENAL CELL CARCINOMA
     Dosage: 50 MG, CYCLIC (DAILY FOR 3 WEEKS ON AND 2 WEEKS OFF)
     Route: 048
     Dates: start: 20170615, end: 20170704
  4. SUTENT [Suspect]
     Active Substance: SUNITINIB MALATE
     Dosage: 50 MG, CYCLIC (DAILY FOR 2 WEEKS ON AND 1 WEEK OFF)
     Route: 048
     Dates: start: 20170725, end: 2017

REACTIONS (20)
  - Thrombocytopenia [Unknown]
  - Blood calcium decreased [Unknown]
  - Back pain [Recovering/Resolving]
  - Blood creatinine increased [Unknown]
  - Stomatitis [Unknown]
  - Neoplasm progression [Unknown]
  - Mineral deficiency [Unknown]
  - Penile haemorrhage [Unknown]
  - Fatigue [Unknown]
  - Asthenia [Unknown]
  - Blood count abnormal [Unknown]
  - Decreased appetite [Not Recovered/Not Resolved]
  - Gait inability [Unknown]
  - Taste disorder [Not Recovered/Not Resolved]
  - Hyponatraemia [Unknown]
  - Mucosal inflammation [Unknown]
  - Epistaxis [Unknown]
  - Weight decreased [Unknown]
  - Ageusia [Unknown]
  - Off label use [Unknown]

NARRATIVE: CASE EVENT DATE: 2017
